FAERS Safety Report 4980424-4 (Version None)
Quarter: 2006Q2

REPORT INFORMATION
  Report Type: 
  Country: None (occurrence: None)
  Receive Date: 20060424
  Receipt Date: 20060306
  Transmission Date: 20061013
  Serious: Yes (Hospitalization)
  Sender: FDA-Public Use
  Company Number: JP-JPN-A200600850

PATIENT
  Age: 75 Year
  Sex: Female
  Weight: 37 kg

DRUGS (9)
  1. VALTREX [Suspect]
     Indication: HERPES ZOSTER
     Dosage: 500MG PER DAY
     Route: 048
     Dates: start: 20060304, end: 20060305
  2. ALOSENN [Concomitant]
     Dosage: .5G PER DAY
     Route: 048
     Dates: end: 20060306
  3. FAMOTIDINE [Concomitant]
     Dosage: 10MG PER DAY
     Route: 048
     Dates: end: 20060306
  4. MARZULENE [Concomitant]
     Dosage: 1G THREE TIMES PER DAY
     Route: 048
     Dates: end: 20060306
  5. AMLODIN [Concomitant]
     Dosage: 5MG PER DAY
     Route: 048
     Dates: end: 20060306
  6. OLMETEC [Concomitant]
     Dosage: 20MG PER DAY
     Route: 048
     Dates: end: 20060306
  7. RENAGEL [Concomitant]
     Dosage: 1000MG THREE TIMES PER DAY
     Route: 048
     Dates: end: 20060306
  8. EPOGEN [Concomitant]
     Dosage: 3IU3 TWO TIMES PER WEEK
     Route: 042
     Dates: end: 20060306
  9. OXAROL [Concomitant]
     Dosage: 10MCG THREE TIMES PER WEEK
     Route: 042
     Dates: end: 20060306

REACTIONS (7)
  - ACTIVITIES OF DAILY LIVING IMPAIRED [None]
  - DEPRESSED LEVEL OF CONSCIOUSNESS [None]
  - DIALYSIS [None]
  - DYSKINESIA [None]
  - ENCEPHALOPATHY [None]
  - VERTIGO [None]
  - VOMITING [None]
